FAERS Safety Report 9271473 (Version 1)
Quarter: 2013Q2

REPORT INFORMATION
  Report Type: Report from Study
  Country: US (occurrence: US)
  Receive Date: 20130506
  Receipt Date: 20130506
  Transmission Date: 20140414
  Serious: Yes (Other)
  Sender: FDA-Public Use
  Company Number: US-JNJFOC-20130416482

PATIENT
  Age: 43 Year
  Sex: Female
  Weight: 58.97 kg

DRUGS (6)
  1. REMICADE [Suspect]
     Indication: CROHN^S DISEASE
     Route: 042
     Dates: start: 201302
  2. REMICADE [Suspect]
     Indication: CROHN^S DISEASE
     Route: 042
     Dates: start: 20121202
  3. REMICADE [Suspect]
     Indication: CROHN^S DISEASE
     Route: 042
     Dates: start: 201303
  4. MESALAMINE [Concomitant]
     Indication: CROHN^S DISEASE
     Route: 048
     Dates: start: 201303
  5. BUDESONIDE [Concomitant]
     Indication: CROHN^S DISEASE
     Route: 048
     Dates: start: 2012
  6. PROBIOTICS [Concomitant]
     Indication: MEDICAL DIET
     Route: 048
     Dates: start: 201303

REACTIONS (3)
  - Surgery [Unknown]
  - Wound infection [Unknown]
  - Hypersensitivity [Recovered/Resolved]
